FAERS Safety Report 6761106-5 (Version None)
Quarter: 2010Q2

REPORT INFORMATION
  Report Type: 
  Country: None (occurrence: None)
  Receive Date: 20100608
  Receipt Date: 20100525
  Transmission Date: 20101027
  Serious: Yes (Hospitalization)
  Sender: FDA-Public Use
  Company Number: US-ELI_LILLY_AND_COMPANY-US201005007771

PATIENT
  Sex: Female

DRUGS (12)
  1. FORTEO [Suspect]
     Indication: OSTEOPOROSIS
     Dosage: 20 UG, DAILY (1/D)
     Dates: start: 20090901
  2. BENZONATATE [Concomitant]
     Dosage: 100 MG, UNK
  3. LEVOTHYROXINE SODIUM [Concomitant]
     Dosage: 75 UG, UNK
  4. OMEPRAZOLE [Concomitant]
     Dosage: 20 MG, UNK
  5. SINGULAIR [Concomitant]
     Dosage: 10 MG, UNK
  6. DOXEPIN HCL [Concomitant]
     Dosage: 40 MG, UNK
  7. ISOSORBIDE MONONITRATE [Concomitant]
     Dosage: 30 MG, UNK
  8. FISH OIL [Concomitant]
  9. ASPIRIN [Concomitant]
  10. COREG [Concomitant]
  11. PRESERVISION LUTEIN EYE VITA.+MIN.SUP.SOFTG. [Concomitant]
  12. SIMVASTATIN [Concomitant]
     Dosage: 40 MG, UNK

REACTIONS (5)
  - DYSPNOEA [None]
  - FALL [None]
  - LOSS OF CONSCIOUSNESS [None]
  - MYOCARDIAL INFARCTION [None]
  - NERVOUSNESS [None]
